FAERS Safety Report 4332151-4 (Version None)
Quarter: 2004Q1

REPORT INFORMATION
  Report Type: 
  Country: None (occurrence: None)
  Receive Date: 20040331
  Receipt Date: 20040312
  Transmission Date: 20041129
  Serious: Yes (Other)
  Sender: FDA-Public Use
  Company Number: GBS040314594

PATIENT
  Age: 92 Year
  Sex: Female
  Weight: 64 kg

DRUGS (5)
  1. ZYPREXA [Suspect]
     Indication: MAJOR DEPRESSION
     Dosage: 10 MG
     Route: 048
     Dates: start: 20040108, end: 20040225
  2. SERTRALINE [Concomitant]
  3. GLICLAZIDE [Concomitant]
  4. ATROPINE SULFATE [Concomitant]
  5. DEXAMETHASONE [Concomitant]

REACTIONS (3)
  - LYMPHOPENIA [None]
  - NEUTROPENIA [None]
  - WHITE BLOOD CELL COUNT DECREASED [None]
